FAERS Safety Report 6539084-3 (Version None)
Quarter: 2010Q1

REPORT INFORMATION
  Report Type: 
  Country: None (occurrence: None)
  Receive Date: 20100115
  Receipt Date: 20100107
  Transmission Date: 20100710
  Serious: Yes (Hospitalization, Other)
  Sender: FDA-Public Use
  Company Number: PHHY2010MX01347

PATIENT
  Age: 27 Year
  Sex: Female

DRUGS (8)
  1. ZELMAC [Suspect]
     Indication: CONSTIPATION
     Dosage: 4 TABLETS PER DAY
     Route: 048
  2. MOTILIUM [Concomitant]
     Indication: CONSTIPATION
     Dosage: UNK
     Route: 048
     Dates: start: 20000101
  3. POLYETHYLENE GLYCOL [Concomitant]
     Indication: CONSTIPATION
     Dosage: UNK
     Route: 048
     Dates: start: 20000101
  4. ZOFRAN [Concomitant]
     Indication: VOMITING
     Dosage: UNK
     Route: 048
     Dates: start: 20090501
  5. METHADONE [Concomitant]
     Indication: PAIN
  6. MORPHINE [Concomitant]
     Indication: PAIN
     Dosage: UNK
     Dates: start: 20090501
  7. LEXAPRO [Concomitant]
     Dosage: UNK
     Route: 048
     Dates: start: 19990101
  8. OMEPRAZOLE [Concomitant]
     Indication: GASTRITIS
     Route: 048

REACTIONS (3)
  - AMENORRHOEA [None]
  - IMPAIRED GASTRIC EMPTYING [None]
  - LARGE INTESTINE OPERATION [None]
